FAERS Safety Report 18054395 (Version 1)
Quarter: 2020Q3

REPORT INFORMATION
  Report Type: Spontaneous
  Country: FR (occurrence: FR)
  Receive Date: 20200722
  Receipt Date: 20200722
  Transmission Date: 20201103
  Serious: Yes (Hospitalization)
  Sender: FDA-Public Use
  Company Number: FR-DRREDDYS-GER/FRA/20/0125205

PATIENT
  Age: 77 Year
  Sex: Male
  Weight: 74 kg

DRUGS (11)
  1. FLUTIFORM [Concomitant]
     Active Substance: FLUTICASONE PROPIONATE\FORMOTEROL FUMARATE
     Indication: PRODUCT USED FOR UNKNOWN INDICATION
  2. TAHOR [Concomitant]
     Active Substance: ATORVASTATIN CALCIUM
     Indication: PRODUCT USED FOR UNKNOWN INDICATION
  3. LANTUS [Concomitant]
     Active Substance: INSULIN GLARGINE
     Indication: PRODUCT USED FOR UNKNOWN INDICATION
  4. VENTOLINE [Concomitant]
     Active Substance: ALBUTEROL
     Indication: PRODUCT USED FOR UNKNOWN INDICATION
  5. ACEBUTOLOL (CHLORHYDRATE D^) [Concomitant]
     Active Substance: ACEBUTOLOL HYDROCHLORIDE
     Indication: PRODUCT USED FOR UNKNOWN INDICATION
  6. APIDRA [Concomitant]
     Active Substance: INSULIN GLULISINE
     Indication: PRODUCT USED FOR UNKNOWN INDICATION
  7. NOVONORM [Concomitant]
     Active Substance: REPAGLINIDE
     Indication: PRODUCT USED FOR UNKNOWN INDICATION
  8. PARACETAMOL [Suspect]
     Active Substance: ACETAMINOPHEN
     Indication: PRODUCT USED FOR UNKNOWN INDICATION
  9. IMATINIB. [Suspect]
     Active Substance: IMATINIB MESYLATE
     Indication: CHRONIC MYELOID LEUKAEMIA
     Route: 048
     Dates: start: 20180202, end: 20180227
  10. DUOPLAVIN 75 MG/75 MG, COMPRIM? PELLICUL? [Concomitant]
     Active Substance: ASPIRIN\CLOPIDOGREL
     Indication: PRODUCT USED FOR UNKNOWN INDICATION
  11. EUCREAS 50 MG/1000 MG, COMPRIM? PELLICUL? [Concomitant]
     Active Substance: METFORMIN HYDROCHLORIDE\VILDAGLIPTIN
     Indication: PRODUCT USED FOR UNKNOWN INDICATION

REACTIONS (7)
  - Anaemia [Recovered/Resolved]
  - Nephrotic syndrome [Recovered/Resolved]
  - Decreased appetite [Recovered/Resolved]
  - Interstitial lung disease [Recovered/Resolved]
  - Nausea [Recovered/Resolved]
  - Thrombocytopenia [Recovered/Resolved]
  - Vomiting [Recovered/Resolved]

NARRATIVE: CASE EVENT DATE: 201802
